FAERS Safety Report 9587144 (Version 1)
Quarter: 2013Q4

REPORT INFORMATION
  Report Type: Spontaneous
  Country: CH (occurrence: CH)
  Receive Date: 20131003
  Receipt Date: 20131003
  Transmission Date: 20140711
  Serious: Yes (Hospitalization)
  Sender: FDA-Public Use
  Company Number: CH-SA-2013SA096550

PATIENT
  Age: 85 Year
  Sex: Female
  Weight: 55 kg

DRUGS (9)
  1. PLAVIX [Suspect]
     Indication: PRODUCT USED FOR UNKNOWN INDICATION
     Route: 048
  2. TILUR [Suspect]
     Indication: PRODUCT USED FOR UNKNOWN INDICATION
     Dosage: FORM:CAPSULES, MEMBRANE
     Route: 048
     Dates: start: 2013, end: 20130720
  3. CARDURA CR [Concomitant]
     Dosage: STRENGTH: 4 MG?COATED TABLETS, MEMBRANE
     Route: 048
  4. TENORETIC [Concomitant]
     Dosage: STRENGTH: 12.5 MG/50 MG
     Route: 048
     Dates: end: 20130720
  5. PLENDIL [Concomitant]
     Dosage: STRENGTH: 10 MG?OTHER
     Route: 048
  6. DANCOR [Concomitant]
     Dosage: STRENGTH: 10 MG
     Route: 048
  7. PRAVASTATIN SODIUM [Concomitant]
     Dosage: STRENGTH: 20 MG
     Route: 048
  8. SERTRALINE [Concomitant]
     Route: 048
  9. TAZOBAC [Concomitant]
     Indication: PNEUMONIA

REACTIONS (4)
  - Renal failure chronic [Recovering/Resolving]
  - Intestinal ulcer [Recovering/Resolving]
  - Anaemia [Recovering/Resolving]
  - Gastrointestinal haemorrhage [Recovering/Resolving]
